FAERS Safety Report 8696362 (Version 2)
Quarter: 2012Q4

REPORT INFORMATION
  Report Type: 
  Country: US (occurrence: US)
  Receive Date: 20120801
  Receipt Date: 20120917
  Transmission Date: 20130627
  Serious: Yes (Other)
  Sender: FDA-Public Use
  Company Number: US-PFIZER INC-2012185550

PATIENT
  Age: 51 Year
  Sex: Female
  Weight: 81.63 kg

DRUGS (4)
  1. EFFEXOR XR [Suspect]
     Indication: DEPRESSION
     Dosage: 150 mg, daily
     Route: 048
  2. LIPITOR [Concomitant]
     Indication: BLOOD CHOLESTEROL INCREASED
     Dosage: 20 mg, daily
     Route: 048
  3. SEROQUEL [Concomitant]
     Dosage: 300 mg, daily
  4. CLONAZEPAM [Concomitant]
     Dosage: 0.5 mg, 2x/day

REACTIONS (1)
  - Pneumonia [Unknown]
